FAERS Safety Report 18577356 (Version 2)
Quarter: 2021Q1

REPORT INFORMATION
  Report Type: Report from Study
  Country: CA (occurrence: CA)
  Receive Date: 20201204
  Receipt Date: 20210201
  Transmission Date: 20210419
  Serious: Yes (Other)
  Sender: FDA-Public Use
  Company Number: CA-JNJFOC-20201150557

PATIENT
  Age: 25 Year
  Sex: Female
  Weight: 59 kg

DRUGS (2)
  1. STELARA [Suspect]
     Active Substance: USTEKINUMAB
     Indication: CROHN^S DISEASE
     Dosage: ON 25?NOV?2020, THE PATIENT RECEIVED 6TH INJECTION WITH THE DOSE OF 90 MG
     Route: 058
     Dates: start: 20200214
  2. STELARA [Suspect]
     Active Substance: USTEKINUMAB

REACTIONS (5)
  - Haematochezia [Unknown]
  - Eye infection [Recovered/Resolved]
  - Dacryostenosis acquired [Not Recovered/Not Resolved]
  - Abdominal pain [Unknown]
  - Blood test abnormal [Unknown]

NARRATIVE: CASE EVENT DATE: 20201030
